FAERS Safety Report 25068869 (Version 3)
Quarter: 2025Q2

REPORT INFORMATION
  Report Type: Spontaneous
  Country: US (occurrence: US)
  Receive Date: 20250312
  Receipt Date: 20250513
  Transmission Date: 20250717
  Serious: No
  Sender: SANOFI AVENTIS
  Company Number: US-SA-2025SA069280

PATIENT
  Age: 66 Year
  Sex: Male
  Weight: 110.45 kg

DRUGS (21)
  1. DUPIXENT [Suspect]
     Active Substance: DUPILUMAB
     Indication: Asthma
     Dosage: 300 MG, QOW
     Route: 058
     Dates: start: 202304
  2. HYDROXYZINE [Concomitant]
     Active Substance: HYDROXYZINE HYDROCHLORIDE
  3. HAEGARDA [Concomitant]
     Active Substance: HUMAN C1-ESTERASE INHIBITOR
     Dosage: UNK, QD
     Route: 058
  4. LORATADINE [Concomitant]
     Active Substance: LORATADINE
  5. GABAPENTIN [Concomitant]
     Active Substance: GABAPENTIN
     Dosage: UNK UNK, QD
     Route: 048
  6. RUCONEST [Concomitant]
     Active Substance: CONESTAT ALFA
     Route: 042
  7. GLIMEPIRIDE [Concomitant]
     Active Substance: GLIMEPIRIDE
     Dosage: UNK UNK, QD
     Route: 048
  8. JARDIANCE [Concomitant]
     Active Substance: EMPAGLIFLOZIN
     Dosage: UNK UNK, QD
     Route: 048
  9. ERGOCALCIFEROL [Concomitant]
     Active Substance: ERGOCALCIFEROL
     Route: 048
  10. TAMSULOSIN HYDROCHLORIDE [Concomitant]
     Active Substance: TAMSULOSIN HYDROCHLORIDE
     Dosage: UNK UNK, QD
     Route: 048
  11. FINASTERIDE [Concomitant]
     Active Substance: FINASTERIDE
     Dosage: UNK UNK, QD
     Route: 048
  12. FOLIC ACID [Concomitant]
     Active Substance: FOLIC ACID
     Dosage: UNK UNK, QD
     Route: 048
  13. HYDRALAZINE HCL [Concomitant]
     Active Substance: HYDRALAZINE HYDROCHLORIDE
     Dosage: UNK UNK, Q4D
     Route: 048
  14. ASPIRIN [Concomitant]
     Active Substance: ASPIRIN
  15. ATORVASTATIN CALCIUM [Concomitant]
     Active Substance: ATORVASTATIN CALCIUM
     Dosage: UNK UNK, QD
     Route: 048
  16. CARVEDILOL [Concomitant]
     Active Substance: CARVEDILOL
     Dosage: UNK UNK, BID
     Route: 048
  17. MONTELUKAST SODIUM [Concomitant]
     Active Substance: MONTELUKAST SODIUM
     Dosage: UNK UNK, QD
     Route: 048
  18. BACLOFEN [Concomitant]
     Active Substance: BACLOFEN
     Dosage: UNK UNK, BID
     Route: 048
  19. LOSARTAN POTASSIUM [Concomitant]
     Active Substance: LOSARTAN POTASSIUM
     Dosage: UNK UNK, QD
     Route: 048
  20. ALBUTEROL SULFATE [Concomitant]
     Active Substance: ALBUTEROL SULFATE
  21. TRELEGY ELLIPTA [Concomitant]
     Active Substance: FLUTICASONE FUROATE\UMECLIDINIUM BROMIDE\VILANTEROL TRIFENATATE

REACTIONS (6)
  - Weight increased [Unknown]
  - Skin disorder [Recovered/Resolved]
  - Dyspnoea [Unknown]
  - Chest pain [Unknown]
  - Dizziness [Unknown]
  - Back pain [Unknown]

NARRATIVE: CASE EVENT DATE: 20250301
